FAERS Safety Report 7659263-1 (Version None)
Quarter: 2011Q3

REPORT INFORMATION
  Report Type: 
  Country: None (occurrence: None)
  Receive Date: 20110805
  Receipt Date: 20110725
  Transmission Date: 20111222
  Serious: Yes (Other)
  Sender: FDA-Public Use
  Company Number: GB-UCBSA-037837

PATIENT
  Sex: Male

DRUGS (2)
  1. KEPPRA [Suspect]
  2. IMMUNOSUPPRESSIVE DRUGS [Concomitant]

REACTIONS (2)
  - AUTOIMMUNE DISORDER [None]
  - CONVULSION [None]
